FAERS Safety Report 25597204 (Version 1)
Quarter: 2025Q3

REPORT INFORMATION
  Report Type: Spontaneous
  Country: EU (occurrence: EU)
  Receive Date: 20250723
  Receipt Date: 20250723
  Transmission Date: 20251020
  Serious: Yes (Other)
  Sender: MYLAN
  Company Number: EU-RECORDATI-2020004048

PATIENT
  Age: 85 Year
  Sex: Female

DRUGS (22)
  1. ATORVASTATIN [Suspect]
     Active Substance: ATORVASTATIN
     Indication: Product used for unknown indication
  2. LERCANIDIPINE [Suspect]
     Active Substance: LERCANIDIPINE
     Indication: Hypertension
     Dosage: 10 MILLIGRAM, QD (0-1-0)
     Dates: start: 201912
  3. LERCANIDIPINE [Suspect]
     Active Substance: LERCANIDIPINE
  4. LERCANIDIPINE [Suspect]
     Active Substance: LERCANIDIPINE
  5. IRBESARTAN [Interacting]
     Active Substance: IRBESARTAN
     Indication: Hypertension
     Dosage: 2 DF, 1X/DAY (2 DOSAGE FORM, QD (1-0-1))
  6. IRBESARTAN [Interacting]
     Active Substance: IRBESARTAN
  7. IRBESARTAN [Interacting]
     Active Substance: IRBESARTAN
  8. IRBESARTAN [Suspect]
     Active Substance: IRBESARTAN
     Indication: Hypertension
     Dosage: 1 DF, 1X/DAY (1 DOSAGE FORM, QD)
     Dates: start: 201904
  9. ASPIRIN [Suspect]
     Active Substance: ASPIRIN
     Indication: Product used for unknown indication
     Dosage: 1 DF, 1X/DAY (1 DOSAGE FORM, QD (1-0-0))
  10. ASPIRIN\ATORVASTATIN CALCIUM\RAMIPRIL [Interacting]
     Active Substance: ASPIRIN\ATORVASTATIN CALCIUM\RAMIPRIL
     Indication: Hypertension
  11. GINKGO [Concomitant]
     Active Substance: GINKGO
     Indication: Product used for unknown indication
     Dosage: 2 DF, 1X/DAY (2 DOSAGE FORM QD (2-0-0))
  12. GINKGO [Concomitant]
     Active Substance: GINKGO
  13. PROPRANOLOL [Concomitant]
     Active Substance: PROPRANOLOL HYDROCHLORIDE
     Indication: Product used for unknown indication
     Dosage: 40 MG, 1X/DAY (40 MG, QD 1-0-0)
  14. PROPRANOLOL [Concomitant]
     Active Substance: PROPRANOLOL HYDROCHLORIDE
  15. Aterina [Concomitant]
     Indication: Product used for unknown indication
     Dosage: 4 DF, 1X/DAY (4 DOSAGE FORM, QD (2-2-0))
     Dates: start: 201904
  16. Aterina [Concomitant]
  17. LORMETAZEPAM [Concomitant]
     Active Substance: LORMETAZEPAM
     Indication: Product used for unknown indication
     Dosage: 1 DF, 1X/DAY (1 DOSAGE FORM, QD (0-0-1))
  18. LORMETAZEPAM [Concomitant]
     Active Substance: LORMETAZEPAM
  19. LEVOTHYROXINE SODIUM [Concomitant]
     Active Substance: LEVOTHYROXINE SODIUM
     Indication: Product used for unknown indication
     Dosage: 1 DF, 1X/DAY (1 DOSAGE FORM, QD (1-0-0))
     Dates: start: 20190916
  20. LEVOTHYROXINE SODIUM [Concomitant]
     Active Substance: LEVOTHYROXINE SODIUM
  21. BISOPROLOL [Concomitant]
     Active Substance: BISOPROLOL
     Indication: Product used for unknown indication
  22. MAGNESIUM [Concomitant]
     Active Substance: MAGNESIUM
     Indication: Product used for unknown indication

REACTIONS (6)
  - Blood pressure inadequately controlled [Recovered/Resolved]
  - Blood pressure increased [Recovering/Resolving]
  - Hypertension [Recovering/Resolving]
  - Potentiating drug interaction [Recovered/Resolved]
  - Treatment noncompliance [Recovered/Resolved]
  - Incorrect dose administered [Recovered/Resolved]

NARRATIVE: CASE EVENT DATE: 20191201
